FAERS Safety Report 4289877-0 (Version None)
Quarter: 2004Q1

REPORT INFORMATION
  Report Type: 
  Country: None (occurrence: None)
  Receive Date: 20040206
  Receipt Date: 20040130
  Transmission Date: 20041129
  Serious: Yes (Hospitalization)
  Sender: FDA-Public Use
  Company Number: 2004197175JP

PATIENT
  Age: 26 Year
  Sex: Female

DRUGS (4)
  1. LINCOCIN [Suspect]
     Indication: UPPER RESPIRATORY TRACT INFLAMMATION
     Dosage: 600 MG, DAILY, INTRAMUSCULAR
     Route: 030
     Dates: start: 20040126, end: 20040127
  2. KERFAL (CEFACLOR) [Concomitant]
  3. RESPLEN (EPRAZINONE HYDROCHLORIDE) [Concomitant]
  4. SP (DEQUALINIUM CHLOIRDE) [Concomitant]

REACTIONS (9)
  - ABDOMINAL PAIN LOWER [None]
  - CYANOSIS [None]
  - DEFAECATION URGENCY [None]
  - DEPRESSED LEVEL OF CONSCIOUSNESS [None]
  - HEADACHE [None]
  - NASOPHARYNGITIS [None]
  - NAUSEA [None]
  - SHOCK [None]
  - SYNCOPE [None]
